FAERS Safety Report 17901083 (Version 4)
Quarter: 2020Q3

REPORT INFORMATION
  Report Type: Spontaneous
  Country: DE (occurrence: DE)
  Receive Date: 20200616
  Receipt Date: 20200918
  Transmission Date: 20201103
  Serious: Yes (Death)
  Sender: FDA-Public Use
  Company Number: DE-ROCHE-2623209

PATIENT
  Sex: Female

DRUGS (2)
  1. TECENTRIQ [Suspect]
     Active Substance: ATEZOLIZUMAB
     Indication: BRONCHIAL CARCINOMA
     Route: 041
     Dates: start: 20191001, end: 20200428
  2. TECENTRIQ [Suspect]
     Active Substance: ATEZOLIZUMAB
     Route: 041

REACTIONS (2)
  - Pancytopenia [Fatal]
  - Aplasia [Fatal]

NARRATIVE: CASE EVENT DATE: 20200517
